FAERS Safety Report 8484601-X (Version None)
Quarter: 2012Q2

REPORT INFORMATION
  Report Type: 
  Country: None (occurrence: None)
  Receive Date: 20120625
  Receipt Date: 20120605
  Transmission Date: 20120825
  Serious: Yes (Other)
  Sender: FDA-Public Use
  Company Number: 1320161

PATIENT
  Age: 75 Year
  Sex: Male

DRUGS (1)
  1. LEVOPHED [Suspect]
     Indication: PRODUCT USED FOR UNKNOWN INDICATION
     Dosage: ONCE, INTRAVENOUS BOLUS
     Route: 040
     Dates: start: 20120404, end: 20120404

REACTIONS (3)
  - INCORRECT DOSE ADMINISTERED BY DEVICE [None]
  - BLOOD PRESSURE INCREASED [None]
  - CHEST PAIN [None]
